FAERS Safety Report 5715340-3 (Version None)
Quarter: 2008Q2

REPORT INFORMATION
  Report Type: 
  Country: None (occurrence: None)
  Receive Date: 20080423
  Receipt Date: 20080411
  Transmission Date: 20081010
  Serious: Yes (Other)
  Sender: FDA-Public Use
  Company Number: US-PFIZER INC-2008032608

PATIENT
  Age: 61 Year
  Sex: Female

DRUGS (6)
  1. AROMASIN [Suspect]
     Indication: BREAST CANCER
  2. REMICADE [Suspect]
     Indication: RHEUMATOID ARTHRITIS
     Dosage: DAILY DOSE:200MG
     Route: 042
  3. REMICADE [Suspect]
     Dosage: DAILY DOSE:500MG
     Route: 042
  4. METHOTREXATE [Suspect]
     Indication: RHEUMATOID ARTHRITIS
  5. METHOTREXATE [Suspect]
  6. HUMIRA [Suspect]
     Indication: RHEUMATOID ARTHRITIS

REACTIONS (2)
  - CROHN'S DISEASE [None]
  - THERAPEUTIC RESPONSE DECREASED [None]
